FAERS Safety Report 18287051 (Version 1)
Quarter: 2020Q3

REPORT INFORMATION
  Report Type: Report from Study
  Country: None (occurrence: GB)
  Receive Date: 20200921
  Receipt Date: 20200921
  Transmission Date: 20201103
  Serious: Yes (Other)
  Sender: FDA-Public Use
  Company Number: GB-ABBVIE-20K-167-3509708-00

PATIENT
  Age: 69 Year
  Sex: Female

DRUGS (2)
  1. DUODOPA [Suspect]
     Active Substance: CARBIDOPA\LEVODOPA
     Indication: PARKINSON^S DISEASE
     Dosage: 100ML CASSETTE DAILY; 5MG/1ML; 20MG/1ML
     Route: 050
  2. DUODOPA [Interacting]
     Active Substance: CARBIDOPA\LEVODOPA

REACTIONS (7)
  - Fractured coccyx [Unknown]
  - Drug interaction [Unknown]
  - Dyskinesia [Unknown]
  - Spinal fracture [Unknown]
  - Fracture [Unknown]
  - Soft tissue injury [Unknown]
  - Fall [Unknown]

NARRATIVE: CASE EVENT DATE: 2020
